FAERS Safety Report 9276719 (Version 3)
Quarter: 2013Q2

REPORT INFORMATION
  Report Type: Report from Study
  Country: US (occurrence: US)
  Receive Date: 20130507
  Receipt Date: 20130626
  Transmission Date: 20140414
  Serious: Yes (Death, Life-Threatening)
  Sender: FDA-Public Use
  Company Number: PHEH2013US009557

PATIENT
  Age: 4 Year
  Sex: Male
  Weight: 17 kg

DRUGS (5)
  1. GLEEVEC [Suspect]
     Indication: HEPATOBLASTOMA
     Dosage: 200 MG, DAILY
     Route: 048
     Dates: start: 20130326, end: 20130401
  2. GLEEVEC [Suspect]
     Dosage: 200 MG, DAILY
     Route: 048
     Dates: start: 20130409, end: 20130410
  3. GEMCITABINE [Suspect]
     Indication: HEPATOBLASTOMA
     Dosage: UNK UKN, DAILY
     Route: 042
  4. OXALIPLATIN [Suspect]
     Indication: HEPATOBLASTOMA
     Dosage: UNK UKN, DAILY
     Route: 042
  5. NEXAVAR [Concomitant]
     Dosage: UNK UKN, UNK

REACTIONS (4)
  - Hepatoblastoma [Fatal]
  - Malignant neoplasm progression [Fatal]
  - Terminal state [Unknown]
  - Drug ineffective [Unknown]
